FAERS Safety Report 4494640-1 (Version None)
Quarter: 2004Q4

REPORT INFORMATION
  Report Type: 
  Country: None (occurrence: None)
  Receive Date: 20041103
  Receipt Date: 20041018
  Transmission Date: 20050328
  Serious: Yes (Other)
  Sender: FDA-Public Use
  Company Number: DSA_25242_2004

PATIENT
  Age: 58 Year
  Sex: Male

DRUGS (10)
  1. DILTIAZEM [Suspect]
     Dosage: 240 MG 1 DAY PO
     Route: 048
  2. CELLCEPT [Suspect]
     Indication: IMMUNOSUPPRESSANT DRUG THERAPY
     Dosage: 1 G BID PO
     Route: 048
  3. SIMULECT [Concomitant]
  4. CYCLOSPORINE [Concomitant]
  5. ACETYLSALICYLIC ACID [Concomitant]
  6. RANITIDINE [Concomitant]
  7. AMPHOTERICIN B [Concomitant]
  8. CALCITRIOL [Concomitant]
  9. TRIMETHOPRIM SULFATE [Concomitant]
  10. PREDNISOLONE [Concomitant]

REACTIONS (12)
  - BILE DUCT OBSTRUCTION [None]
  - BLOOD ALKALINE PHOSPHATASE INCREASED [None]
  - CHOLELITHIASIS [None]
  - GAMMA-GLUTAMYLTRANSFERASE INCREASED [None]
  - HEPATOBILIARY NEOPLASM [None]
  - HYPOALBUMINAEMIA [None]
  - ILEUS PARALYTIC [None]
  - JAUNDICE [None]
  - MALLORY-WEISS SYNDROME [None]
  - NAUSEA [None]
  - PANCYTOPENIA [None]
  - VOMITING [None]
